FAERS Safety Report 13946758 (Version 1)
Quarter: 2017Q3

REPORT INFORMATION
  Report Type: Spontaneous
  Country: FR (occurrence: FR)
  Receive Date: 20170907
  Receipt Date: 20170907
  Transmission Date: 20171128
  Serious: Yes (Other)
  Sender: FDA-Public Use
  Company Number: FR-SA-2017SA160629

PATIENT
  Age: 85 Year
  Sex: Female

DRUGS (4)
  1. GALANTAMINE. [Interacting]
     Active Substance: GALANTAMINE
     Route: 065
  2. PARACETAMOL [Interacting]
     Active Substance: ACETAMINOPHEN
     Route: 065
  3. ESCITALOPRAM [Interacting]
     Active Substance: ESCITALOPRAM OXALATE
     Route: 065
  4. IRBESARTAN. [Suspect]
     Active Substance: IRBESARTAN
     Route: 065

REACTIONS (2)
  - Electrocardiogram QT prolonged [Recovered/Resolved]
  - Drug interaction [Unknown]
